FAERS Safety Report 14206800 (Version 2)
Quarter: 2017Q4

REPORT INFORMATION
  Report Type: Report from Study
  Country: GB (occurrence: GB)
  Receive Date: 20171121
  Receipt Date: 20171218
  Transmission Date: 20180321
  Serious: Yes (Hospitalization)
  Sender: FDA-Public Use
  Company Number: GB-ROCHE-1859893

PATIENT
  Age: 65 Year
  Sex: Female

DRUGS (3)
  1. METHOTREXATE. [Concomitant]
     Active Substance: METHOTREXATE
  2. SULPHASALAZINE [Concomitant]
     Active Substance: SULFASALAZINE
     Indication: RHEUMATOID ARTHRITIS
  3. RITUXIMAB. [Suspect]
     Active Substance: RITUXIMAB
     Indication: RHEUMATOID ARTHRITIS
     Route: 065
     Dates: start: 20080402

REACTIONS (17)
  - Chest pain [Unknown]
  - Chronic kidney disease [Unknown]
  - Oedema peripheral [Unknown]
  - Weight decreased [Unknown]
  - Lower respiratory tract infection [Unknown]
  - Acute coronary syndrome [Unknown]
  - Hypoglycaemia [Unknown]
  - Hypertension [Unknown]
  - Costochondritis [Unknown]
  - Head injury [Unknown]
  - Abdominal distension [Unknown]
  - Rales [Unknown]
  - Fall [Unknown]
  - Normocytic anaemia [Unknown]
  - White blood cells urine positive [Unknown]
  - Acute kidney injury [Unknown]
  - Vomiting [Unknown]

NARRATIVE: CASE EVENT DATE: 20140221
